FAERS Safety Report 23277138 (Version 7)
Quarter: 2024Q3

REPORT INFORMATION
  Report Type: Report from Study
  Country: US (occurrence: US)
  Receive Date: 20231208
  Receipt Date: 20240712
  Transmission Date: 20241016
  Serious: Yes (Hospitalization, Other)
  Sender: SANDOZ
  Company Number: US-002147023-NVSC2021US244452

PATIENT
  Age: 54 Year
  Sex: Female
  Weight: 80.739 kg

DRUGS (16)
  1. TREPROSTINIL [Suspect]
     Active Substance: TREPROSTINIL
     Dosage: 21 NG/KG/MIN (SUBCUT), CONT
     Route: 058
     Dates: start: 20220315
  2. TREPROSTINIL [Suspect]
     Active Substance: TREPROSTINIL
     Dosage: UNK (19 NG/KG/MIN,1 MG/ML CONCENTRATION)
     Route: 042
  3. TREPROSTINIL [Suspect]
     Active Substance: TREPROSTINIL
     Dosage: UNK, CONT (17NG/KG/MIN, 1 MG/ML CONCENTRATION)
     Route: 042
     Dates: start: 20211025
  4. TREPROSTINIL [Suspect]
     Active Substance: TREPROSTINIL
     Dosage: UNK, CONT (21NG/KG/MIN,2.5 MG/ML CONCENTRATION)
     Route: 042
  5. TREPROSTINIL [Suspect]
     Active Substance: TREPROSTINIL
     Dosage: UNK
     Route: 042
  6. TREPROSTINIL [Suspect]
     Active Substance: TREPROSTINIL
     Indication: Pulmonary arterial hypertension
     Dosage: UNK, CONT (21NG/KG/MIN, 2.5 MG CONCENTRATION)
     Route: 042
     Dates: start: 20210901
  7. TREPROSTINIL [Suspect]
     Active Substance: TREPROSTINIL
     Dosage: UNK, CONT (21NG/KG/MIN, 2.5 MG/ML CONCENTRATION)
     Route: 042
  8. TREPROSTINIL [Suspect]
     Active Substance: TREPROSTINIL
     Dosage: UNK,CONT (21NG/KG/MIN, 2.5 MG/ML CONCENTRATION)
     Route: 058
  9. TREPROSTINIL [Suspect]
     Active Substance: TREPROSTINIL
     Dosage: 21 NG/KG/MIN, CONT(CONCENTRATION- 5 MG/ML)
     Route: 058
  10. TREPROSTINIL [Suspect]
     Active Substance: TREPROSTINIL
     Dosage: 21 NG/KG/MIN, CONT (STRENGTH: 5 MG/ML)
     Route: 058
     Dates: start: 20210901
  11. TREPROSTINIL [Suspect]
     Active Substance: TREPROSTINIL
     Dosage: 21 NG/KG/MIN, CONT
     Route: 058
     Dates: start: 20220315
  12. TREPROSTINIL [Suspect]
     Active Substance: TREPROSTINIL
     Dosage: 21 NG/KG/MIN (SUBCUT), CONT
     Route: 058
     Dates: start: 20220315
  13. ELIQUIS [Concomitant]
     Active Substance: APIXABAN
     Indication: Product used for unknown indication
     Dosage: UNK
     Route: 065
  14. OPSUMIT [Concomitant]
     Active Substance: MACITENTAN
     Indication: Product used for unknown indication
     Dosage: UNK
     Route: 065
  15. OZEMPIC [Concomitant]
     Active Substance: SEMAGLUTIDE
     Indication: Product used for unknown indication
     Dosage: UNK
     Route: 065
  16. SILDENAFIL CITRATE [Concomitant]
     Active Substance: SILDENAFIL CITRATE
     Indication: Product used for unknown indication
     Dosage: UNK
     Route: 065

REACTIONS (35)
  - Pleural effusion [Unknown]
  - Pneumothorax [Unknown]
  - Sepsis [Unknown]
  - Oropharyngeal pain [Unknown]
  - Swelling [Unknown]
  - Dehydration [Unknown]
  - Blood magnesium decreased [Unknown]
  - Palpitations [Recovered/Resolved]
  - Pyrexia [Unknown]
  - Malaise [Unknown]
  - Palpitations [Unknown]
  - Infection [Unknown]
  - Dyspnoea [Unknown]
  - COVID-19 [Unknown]
  - Tachycardia [Unknown]
  - Hypertension [Unknown]
  - Vascular device infection [Unknown]
  - Fatigue [Unknown]
  - Dizziness [Unknown]
  - Infusion site infection [Unknown]
  - Diarrhoea [Unknown]
  - Infusion site infection [Unknown]
  - Anxiety [Unknown]
  - Weight decreased [Unknown]
  - Constipation [Unknown]
  - Diarrhoea [Recovered/Resolved]
  - Nausea [Recovered/Resolved]
  - Headache [Recovered/Resolved]
  - Pain in jaw [Recovered/Resolved]
  - Nausea [Recovering/Resolving]
  - Vomiting [Unknown]
  - Pain in jaw [Unknown]
  - Headache [Unknown]
  - Injection site pain [Not Recovered/Not Resolved]
  - Abdominal pain [Unknown]

NARRATIVE: CASE EVENT DATE: 20211204
